FAERS Safety Report 7573242-4 (Version None)
Quarter: 2011Q2

REPORT INFORMATION
  Report Type: 
  Country: None (occurrence: None)
  Receive Date: 20110525
  Receipt Date: 20110214
  Transmission Date: 20111010
  Serious: Yes (Other)
  Sender: FDA-Public Use
  Company Number: 320034

PATIENT
  Age: 72 Year
  Sex: Female
  Weight: 77.1 kg

DRUGS (17)
  1. LANTUS [Concomitant]
  2. QUINAPRIL (QUINAPRIL (QUINAPRIL) [Concomitant]
  3. ASPIRIN [Concomitant]
  4. DIOVAN [Concomitant]
  5. NITROGLYCERIN [Concomitant]
  6. VITAMIN D [Concomitant]
  7. CARVEDILOL [Concomitant]
  8. VICTOZA [Suspect]
     Indication: TYPE 2 DIABETES MELLITUS
     Dosage: SUBCUTANEOUS
     Route: 058
     Dates: start: 20101029, end: 20101109
  9. ESTER C (ASCORBIC ACID) [Concomitant]
  10. SPIRONOLACTONE [Concomitant]
  11. JANUVIA [Suspect]
     Indication: TYPE 2 DIABETES MELLITUS
     Dates: start: 20100301, end: 20101109
  12. FUROSEMIDE [Concomitant]
  13. GLUCOSAMINE (GLUCOSAMINE) [Concomitant]
  14. ALLOPURINOL [Concomitant]
  15. CRESTOR [Concomitant]
  16. LEVONORGESTREL [Concomitant]
  17. GEN-HYDROXYCHLOROQUINE (HYDROXYCHLOROQUINE SULFATE) [Concomitant]

REACTIONS (4)
  - PANCREATITIS [None]
  - ASTHENIA [None]
  - HYPERHIDROSIS [None]
  - CONSTIPATION [None]
